FAERS Safety Report 14187956 (Version 1)
Quarter: 2017Q4

REPORT INFORMATION
  Report Type: Spontaneous
  Country: US (occurrence: None)
  Receive Date: 20171114
  Receipt Date: 20171114
  Transmission Date: 20180321
  Serious: Yes (Death)
  Sender: FDA-Public Use
  Company Number: None

PATIENT
  Age: 64 Year
  Sex: Male
  Weight: 77.11 kg

DRUGS (1)
  1. HUMIRA [Suspect]
     Active Substance: ADALIMUMAB
     Indication: PSORIASIS
     Dosage: 40ML/.8ML PEN 2 TIMES A MONTH THIGH?
     Dates: start: 201101, end: 201506

REACTIONS (6)
  - Bradyphrenia [None]
  - Metastases to lung [None]
  - Premature ageing [None]
  - Hair colour changes [None]
  - Unevaluable event [None]
  - Anal cancer stage III [None]

NARRATIVE: CASE EVENT DATE: 20160206
